FAERS Safety Report 6720494 (Version 2)
Quarter: 2013Q2

REPORT INFORMATION
  Report Type: Report from Study
  Country: FR (occurrence: FR)
  Receive Date: 20080807
  Receipt Date: 20130624
  Transmission Date: 20140414
  Serious: Yes (Other)
  Sender: FDA-Public Use
  Company Number: PHHY2008FR16456

PATIENT
  Age: 57 Year
  Sex: Female
  Weight: 56 kg

DRUGS (2)
  1. GLIVEC [Suspect]
     Dosage: 600 MG, UNK
     Dates: start: 20060215, end: 200709
  2. OMEPRAZOLE [Concomitant]
     Indication: PERFORATED ULCER
     Dosage: UNK UKN, UNK
     Dates: start: 20060216, end: 200709

REACTIONS (1)
  - Delusion [Not Recovered/Not Resolved]
